FAERS Safety Report 17969456 (Version 2)
Quarter: 2020Q3

REPORT INFORMATION
  Report Type: Spontaneous
  Country: US (occurrence: US)
  Receive Date: 20200701
  Receipt Date: 20200708
  Transmission Date: 20201103
  Serious: Yes (Other)
  Sender: FDA-Public Use
  Company Number: US-PFIZER INC-2020239719

PATIENT
  Age: 78 Year
  Sex: Female

DRUGS (3)
  1. CHANTIX [Suspect]
     Active Substance: VARENICLINE TARTRATE
     Indication: SMOKING CESSATION THERAPY
     Dosage: 0.5 DF, DAILY [0.5 TAB DAILY FOR 3 DAYS]
     Route: 048
     Dates: start: 20200502
  2. CHANTIX [Suspect]
     Active Substance: VARENICLINE TARTRATE
     Dosage: 0.5 DF, 2X/DAY [0.5 TAB TWICE DAILY FOR 4 DAYS]
     Route: 048
  3. CHANTIX [Suspect]
     Active Substance: VARENICLINE TARTRATE
     Dosage: 1 MG, 2X/DAY [1 TAB TWICE DAILY]
     Route: 048

REACTIONS (1)
  - Glaucoma [Unknown]
